FAERS Safety Report 6899157-2 (Version None)
Quarter: 2010Q3

REPORT INFORMATION
  Report Type: 
  Country: None (occurrence: None)
  Receive Date: 20100802
  Receipt Date: 20080111
  Transmission Date: 20110219
  Serious: No
  Sender: FDA-Public Use
  Company Number: US-PFIZER INC-2008004510

PATIENT
  Sex: Female
  Weight: 98.9 kg

DRUGS (13)
  1. LYRICA [Suspect]
     Indication: NEUROPATHY PERIPHERAL
     Route: 048
     Dates: start: 20070101
  2. LANTUS [Concomitant]
  3. HUMALOG [Concomitant]
  4. SYMLIN [Concomitant]
  5. ALL OTHER THERAPEUTIC PRODUCTS [Concomitant]
  6. LIPITOR [Concomitant]
  7. ACETYLSALICYLIC ACID SRT [Concomitant]
  8. AGGRENOX [Concomitant]
  9. NEXIUM [Concomitant]
  10. FELODIPINE [Concomitant]
  11. SPIRIVA [Concomitant]
  12. ALBUTEROL [Concomitant]
     Route: 055
  13. TRAMADOL HYDROCHLORIDE [Concomitant]

REACTIONS (4)
  - DIZZINESS [None]
  - OEDEMA PERIPHERAL [None]
  - VISION BLURRED [None]
  - WEIGHT INCREASED [None]
